FAERS Safety Report 6501719-9 (Version None)
Quarter: 2009Q4

REPORT INFORMATION
  Report Type: 
  Country: None (occurrence: None)
  Receive Date: 20091127
  Receipt Date: 20081230
  Transmission Date: 20100525
  Serious: Yes (Disabling, Other)
  Sender: FDA-Public Use
  Company Number: WAES 0812USA05212

PATIENT
  Age: 64 Year
  Sex: Female
  Weight: 75.2971 kg

DRUGS (6)
  1. FOSAMAX [Suspect]
     Indication: BREAST CANCER
     Dosage: 70 MG/WKY/PO
     Route: 048
     Dates: start: 20071001, end: 20080601
  2. FOSAMAX [Suspect]
     Indication: OSTEOPENIA
     Dosage: 70 MG/WKY/PO
     Route: 048
     Dates: start: 20071001, end: 20080601
  3. FOSAMAX PLUS D [Suspect]
     Indication: BREAST CANCER
     Dosage: PO
     Route: 048
  4. FOSAMAX PLUS D [Suspect]
     Indication: OSTEOPENIA
     Dosage: PO
     Route: 048
  5. ALLEGRA D 24 HOUR [Concomitant]
  6. FEMARA [Concomitant]

REACTIONS (10)
  - ABSCESS [None]
  - HYPERTENSION [None]
  - IMPAIRED HEALING [None]
  - JAW DISORDER [None]
  - JAW FRACTURE [None]
  - ORAL DISORDER [None]
  - ORAL INFECTION [None]
  - OSTEOMYELITIS [None]
  - OSTEONECROSIS [None]
  - SINUS DISORDER [None]
